FAERS Safety Report 9144257 (Version 5)
Quarter: 2013Q3

REPORT INFORMATION
  Report Type: Spontaneous
  Country: CA (occurrence: CA)
  Receive Date: 20130306
  Receipt Date: 20130718
  Transmission Date: 20140515
  Serious: Yes (Other)
  Sender: FDA-Public Use
  Company Number: CA-ROCHE-1196031

PATIENT
  Age: 41 Year
  Sex: Male

DRUGS (5)
  1. XOLAIR [Suspect]
     Indication: ASTHMA
     Route: 058
     Dates: start: 20091104
  2. XOLAIR [Suspect]
     Route: 058
     Dates: start: 20091109
  3. XOLAIR [Suspect]
     Route: 058
     Dates: start: 20100224
  4. XOLAIR [Suspect]
     Route: 058
     Dates: start: 20130403
  5. XOLAIR [Suspect]
     Route: 058
     Dates: start: 20130515

REACTIONS (13)
  - Heart rate irregular [Unknown]
  - Lower respiratory tract infection [Unknown]
  - Dyspnoea [Unknown]
  - Pharyngitis streptococcal [Unknown]
  - Increased upper airway secretion [Recovering/Resolving]
  - Malaise [Unknown]
  - Nasopharyngitis [Unknown]
  - Laryngitis [Unknown]
  - Lower respiratory tract infection [Unknown]
  - Cough [Unknown]
  - Fatigue [Unknown]
  - Oropharyngeal pain [Unknown]
  - Bone pain [Unknown]
